FAERS Safety Report 25017659 (Version 1)
Quarter: 2025Q1

REPORT INFORMATION
  Report Type: Spontaneous
  Country: US (occurrence: None)
  Receive Date: 20250226
  Receipt Date: 20250226
  Transmission Date: 20250409
  Serious: Yes (Life-Threatening, Hospitalization)
  Sender: FDA-CTU
  Company Number: None

PATIENT
  Age: 72 Year
  Sex: Female
  Weight: 106.7 kg

DRUGS (3)
  1. DOXYCYCLINE [Suspect]
     Active Substance: DOXYCYCLINE
     Indication: Cough
     Dosage: FREQUENCY : TWICE A DAY;?
     Route: 048
     Dates: start: 20250213, end: 20250219
  2. DOXYCYCLINE [Suspect]
     Active Substance: DOXYCYCLINE
     Indication: Chronic obstructive pulmonary disease
  3. PREDNISONE [Concomitant]
     Active Substance: PREDNISONE
     Dates: start: 20250213

REACTIONS (6)
  - Tongue blistering [None]
  - Oral mucosal blistering [None]
  - Epistaxis [None]
  - Malaise [None]
  - Asthenia [None]
  - Thrombocytopenia [None]

NARRATIVE: CASE EVENT DATE: 20250219
